FAERS Safety Report 13363988 (Version 1)
Quarter: 2017Q1

REPORT INFORMATION
  Report Type: Spontaneous
  Country: US (occurrence: US)
  Receive Date: 20170323
  Receipt Date: 20170323
  Transmission Date: 20170429
  Serious: No
  Sender: FDA-Public Use
  Company Number: US-009507513-1702USA011656

PATIENT
  Sex: Male

DRUGS (1)
  1. INTRON A [Suspect]
     Active Substance: INTERFERON ALFA-2B
     Indication: MYCOSIS FUNGOIDES
     Dosage: 1.5 MILLION IU (0.25 ML), TIW (THREE NIGHTS PER WEEK); CONCENTRATION: 18MM UNIT/3ML MDV
     Route: 058
     Dates: start: 20161031

REACTIONS (1)
  - Adverse drug reaction [Unknown]
